FAERS Safety Report 8862809 (Version 1)
Quarter: 2012Q4

REPORT INFORMATION
  Report Type: 
  Country: CA (occurrence: CA)
  Receive Date: 20121026
  Receipt Date: 20121026
  Transmission Date: 20130627
  Serious: Yes (Other)
  Sender: FDA-Public Use
  Company Number: PHHY2006CA009986

PATIENT

DRUGS (1)
  1. SANDOSTATIN LAR [Suspect]
     Dosage: 30 mg

REACTIONS (6)
  - Hypotension [Unknown]
  - Psychomotor hyperactivity [Unknown]
  - Hyperhidrosis [Unknown]
  - Nervousness [Unknown]
  - Drug dispensing error [Unknown]
  - Alopecia [Unknown]
